FAERS Safety Report 8523019 (Version 6)
Quarter: 2013Q2

REPORT INFORMATION
  Report Type: Spontaneous
  Country: US (occurrence: US)
  Receive Date: 20120420
  Receipt Date: 20130502
  Transmission Date: 20140414
  Serious: Yes (Disabling, Other)
  Sender: FDA-Public Use
  Company Number: US-PFIZER INC-2012095030

PATIENT
  Age: 63 Year
  Sex: Female
  Weight: 68.93 kg

DRUGS (8)
  1. LOPID [Suspect]
     Indication: BLOOD CHOLESTEROL INCREASED
     Dosage: 600 MG, ONCE A DAY
     Route: 048
  2. PROTONIX [Suspect]
     Indication: GASTROOESOPHAGEAL REFLUX DISEASE
     Dosage: 40 MG, 2 TIMES A DAY
     Route: 065
  3. OMEPRAZOLE [Suspect]
     Indication: GASTROOESOPHAGEAL REFLUX DISEASE
     Dosage: 20 MG, ONCE A DAY
     Dates: end: 20130205
  4. CRESTOR [Concomitant]
     Indication: BLOOD CHOLESTEROL INCREASED
     Dosage: 10 MG, UNK
  5. LEVOTHYROXINE [Concomitant]
     Dosage: 25 UG, ONCE A DAY
  6. XANAX [Concomitant]
     Dosage: 0.5 MG, UNK
  7. DIOVAN [Concomitant]
     Indication: HYPERTENSION
     Dosage: 320 MG, 1X/DAY
  8. POTASSIUM [Concomitant]
     Dosage: 20 MG, ONCE A DAY

REACTIONS (13)
  - Back disorder [Unknown]
  - Abasia [Unknown]
  - Back pain [Unknown]
  - Hypothyroidism [Unknown]
  - Gastrooesophageal reflux disease [Not Recovered/Not Resolved]
  - Upper respiratory tract congestion [Unknown]
  - Abdominal distension [Unknown]
  - Chest discomfort [Unknown]
  - Fatigue [Unknown]
  - Choking sensation [Not Recovered/Not Resolved]
  - Drug ineffective [Unknown]
  - Asthenia [Unknown]
  - Malaise [Unknown]
